FAERS Safety Report 5390211-3 (Version None)
Quarter: 2007Q3

REPORT INFORMATION
  Report Type: 
  Country: None (occurrence: None)
  Receive Date: 20070718
  Receipt Date: 20070710
  Transmission Date: 20080115
  Serious: Yes (Death, Hospitalization)
  Sender: FDA-Public Use
  Company Number: FR-ROCHE-506332

PATIENT
  Age: 74 Year
  Sex: Male

DRUGS (3)
  1. CAPECITABINE [Suspect]
     Indication: METASTATIC GASTRIC CANCER
     Dosage: GIVEN ON DAYS TWO TO FIFTEEN OF EACH 21-DAY-CYCLE.
     Route: 048
  2. EPIRUBICIN [Suspect]
     Indication: METASTATIC GASTRIC CANCER
     Dosage: GIVEN ON DAY ONE OF EACH 21-DAY-CYCLE IN 45CC OF NACL 0.9% IN 15 MINUTES.
     Route: 042
  3. CISPLATIN [Suspect]
     Indication: METASTATIC GASTRIC CANCER
     Dosage: GIVEN ON DAY ONE OF EACH 21-DAY-CYCLE IN 250CC OF NACL 0.9% IN ONE HOUR INFUSION.
     Route: 042

REACTIONS (2)
  - FEBRILE NEUTROPENIA [None]
  - SEPTIC SHOCK [None]
